FAERS Safety Report 9340486 (Version 1)
Quarter: 2013Q2

REPORT INFORMATION
  Report Type: Other
  Country: GB (occurrence: GB)
  Receive Date: 20130610
  Receipt Date: 20130610
  Transmission Date: 20140414
  Serious: Yes (Hospitalization)
  Sender: FDA-Public Use
  Company Number: GB-PERRIGO-13GB005895

PATIENT
  Age: 78 Year
  Sex: Male

DRUGS (1)
  1. NAPROXEN 250MG 16028/0144 [Suspect]
     Indication: PAIN
     Dosage: 500 MG, BID
     Route: 048
     Dates: start: 20130509, end: 20130520

REACTIONS (1)
  - Upper gastrointestinal haemorrhage [Recovering/Resolving]
